FAERS Safety Report 17420253 (Version 1)
Quarter: 2020Q3

REPORT INFORMATION
  Report Type: Spontaneous
  Country: TW (occurrence: TW)
  Receive Date: 20200214
  Receipt Date: 20200214
  Transmission Date: 20201104
  Serious: Yes (Life-Threatening)
  Sender: FDA-Public Use
  Company Number: TW-ASTRAZENECA-2020SE23047

PATIENT
  Age: 78 Year
  Sex: Female

DRUGS (2)
  1. DURVALUMAB. [Suspect]
     Active Substance: DURVALUMAB
     Dosage: 1500 MG QD, 3 DAYS
     Route: 041
  2. TREMELIMUMAB. [Suspect]
     Active Substance: TREMELIMUMAB
     Dosage: 75 MG QD, 3 DAYS
     Route: 041

REACTIONS (2)
  - Myocarditis [Recovering/Resolving]
  - Myasthenia gravis crisis [Unknown]
